FAERS Safety Report 16176892 (Version 1)
Quarter: 2019Q2

REPORT INFORMATION
  Report Type: Spontaneous
  Country: US (occurrence: US)
  Receive Date: 20190409
  Receipt Date: 20190409
  Transmission Date: 20190711
  Serious: Yes (Death, Other)
  Sender: FDA-Public Use
  Company Number: US-ASTRAZENECA-2018SF47693

PATIENT
  Age: 29387 Day
  Sex: Male

DRUGS (12)
  1. NEXIUM [Suspect]
     Active Substance: ESOMEPRAZOLE MAGNESIUM
     Route: 048
     Dates: start: 2002, end: 20070713
  2. MEGACE [Concomitant]
     Active Substance: MEGESTROL ACETATE
  3. RESTORIL [Concomitant]
     Active Substance: TEMAZEPAM
  4. GLIPIZIDE. [Concomitant]
     Active Substance: GLIPIZIDE
  5. PRILOSEC [Suspect]
     Active Substance: OMEPRAZOLE MAGNESIUM
     Indication: DYSPEPSIA
     Route: 048
     Dates: start: 2002, end: 2007
  6. ALTACE [Concomitant]
     Active Substance: RAMIPRIL
  7. PROTONIX [Suspect]
     Active Substance: PANTOPRAZOLE SODIUM
     Indication: GASTROOESOPHAGEAL REFLUX DISEASE
     Route: 065
  8. AVANDIA [Concomitant]
     Active Substance: ROSIGLITAZONE MALEATE
  9. PRILOSEC [Suspect]
     Active Substance: OMEPRAZOLE MAGNESIUM
     Indication: DYSPEPSIA
     Route: 048
  10. ACEBUTOLOL [Concomitant]
     Active Substance: ACEBUTOLOL
  11. NEXIUM [Suspect]
     Active Substance: ESOMEPRAZOLE MAGNESIUM
     Route: 048
     Dates: start: 2002, end: 2007
  12. LACTULOSE. [Concomitant]
     Active Substance: LACTULOSE

REACTIONS (7)
  - Death [Fatal]
  - Chronic kidney disease-mineral and bone disorder [Not Recovered/Not Resolved]
  - Nephrogenic anaemia [Not Recovered/Not Resolved]
  - Chronic kidney disease [Unknown]
  - Renal failure [Not Recovered/Not Resolved]
  - End stage renal disease [Not Recovered/Not Resolved]
  - Acute kidney injury [Not Recovered/Not Resolved]

NARRATIVE: CASE EVENT DATE: 20060531
